FAERS Safety Report 16027216 (Version 1)
Quarter: 2019Q1

REPORT INFORMATION
  Report Type: Spontaneous
  Country: US (occurrence: US)
  Receive Date: 20190303
  Receipt Date: 20190303
  Transmission Date: 20190418
  Serious: Yes (Other)
  Sender: FDA-Public Use
  Company Number: US-JNJFOC-20190236392

PATIENT
  Age: 53 Year
  Sex: Male

DRUGS (1)
  1. JOHNSONS BABY BABY POWDER UNSPECIFIED [ZINC OXIDE] [Suspect]
     Active Substance: ZINC OXIDE
     Indication: PRODUCT USED FOR UNKNOWN INDICATION
     Route: 061
     Dates: start: 1957

REACTIONS (2)
  - Prostate cancer [Unknown]
  - Suspected product contamination [Unknown]
